FAERS Safety Report 9970077 (Version 1)
Quarter: 2014Q1

REPORT INFORMATION
  Report Type: Spontaneous
  Country: IT (occurrence: None)
  Receive Date: 20140304
  Receipt Date: 20140304
  Transmission Date: 20141002
  Serious: Yes (Hospitalization)
  Sender: FDA-Public Use
  Company Number: AURA-APL-2014-02262

PATIENT
  Age: 32 Year
  Sex: Female

DRUGS (4)
  1. SERTRALINE [Suspect]
     Indication: PRODUCT USED FOR UNKNOWN INDICATION
     Dosage: 1 D
     Route: 048
     Dates: start: 20140202, end: 20140202
  2. XANAX [Suspect]
     Indication: PRODUCT USED FOR UNKNOWN INDICATION
     Dosage: 1 D
     Route: 048
     Dates: start: 20140202, end: 20140202
  3. QUETIAPINE (QUETIAPINE) [Concomitant]
  4. FLURAZEPAM (FLURAZEPAM) [Concomitant]

REACTIONS (2)
  - Drug abuse [None]
  - Intentional overdose [None]
